FAERS Safety Report 19083233 (Version 4)
Quarter: 2021Q2

REPORT INFORMATION
  Report Type: Report from Study
  Country: BR (occurrence: BR)
  Receive Date: 20210401
  Receipt Date: 20210424
  Transmission Date: 20210717
  Serious: Yes (Death, Hospitalization)
  Sender: FDA-Public Use
  Company Number: NVSC2021BR074017

PATIENT
  Age: 71 Year
  Sex: Male
  Weight: 110 kg

DRUGS (10)
  1. RAMIPRIL. [Concomitant]
     Active Substance: RAMIPRIL
     Indication: HYPERTENSION
     Dosage: 25 MG, QD (SOME 20 YEARS AGO)
     Route: 048
  2. MEKINIST [Suspect]
     Active Substance: TRAMETINIB DIMETHYL SULFOXIDE
     Indication: MALIGNANT MELANOMA
     Dosage: UNK
     Route: 048
     Dates: start: 2020, end: 202102
  3. VENAFLON [Concomitant]
     Indication: CARDIOVASCULAR INSUFFICIENCY
     Dosage: UNK, QD
     Route: 048
     Dates: start: 2016
  4. ATENOLOL. [Concomitant]
     Active Substance: ATENOLOL
     Indication: HYPERTENSION
     Dosage: 25 MG, QD (SOME 20 YEARS AGO)
     Route: 048
  5. FINASTERIDE. [Concomitant]
     Active Substance: FINASTERIDE
     Indication: HYPERPLASIA
     Dosage: 4 MG, QD (SOME 10 YEARS AGO)
     Route: 048
  6. TAFINLAR [Suspect]
     Active Substance: DABRAFENIB MESYLATE
     Indication: MALIGNANT MELANOMA
     Dosage: 75 MG, BID (MORNING AND NIGHT)
     Route: 048
     Dates: start: 2020, end: 202102
  7. XARELTO [Concomitant]
     Active Substance: RIVAROXABAN
     Indication: ANTICOAGULANT THERAPY
     Dosage: 10 MG, QD (2 YEARS AGO)
     Route: 048
  8. GLIFAGE [Concomitant]
     Active Substance: METFORMIN HYDROCHLORIDE
     Indication: GLUCOSE TOLERANCE IMPAIRED
     Dosage: 850?2 TABLETS, QD (SOME 20 YEARS AGO)
     Route: 048
  9. INSULIN [Concomitant]
     Active Substance: INSULIN NOS
     Indication: GLUCOSE TOLERANCE IMPAIRED
     Dosage: UNK
     Route: 065
     Dates: start: 20210322
  10. DUOMO [Concomitant]
     Active Substance: DOXAZOSIN MESYLATE
     Indication: HYPERPLASIA
     Dosage: 2 MG, QD (SOME 10 YEARS AGO)
     Route: 048

REACTIONS (7)
  - Melanoma recurrent [Fatal]
  - Malignant melanoma [Fatal]
  - Seizure [Fatal]
  - Metastases to central nervous system [Fatal]
  - Malignant neoplasm progression [Fatal]
  - Apnoea [Fatal]
  - Tumour rupture [Fatal]

NARRATIVE: CASE EVENT DATE: 20210220
